FAERS Safety Report 18996786 (Version 1)
Quarter: 2021Q1

REPORT INFORMATION
  Report Type: Spontaneous
  Country: US (occurrence: US)
  Receive Date: 20210311
  Receipt Date: 20210311
  Transmission Date: 20210420
  Serious: No
  Sender: FDA-Public Use
  Company Number: US-HIKMA PHARMACEUTICALS USA INC.-US-H14001-20-03078

PATIENT
  Age: 63 Year
  Sex: Female

DRUGS (1)
  1. FLUTICASONE. [Suspect]
     Active Substance: FLUTICASONE
     Indication: HYPERSENSITIVITY
     Route: 045
     Dates: start: 20200624, end: 20200624

REACTIONS (8)
  - Muscle spasms [Not Recovered/Not Resolved]
  - Heart rate increased [Not Recovered/Not Resolved]
  - Saliva altered [Not Recovered/Not Resolved]
  - Diarrhoea [Not Recovered/Not Resolved]
  - Headache [Not Recovered/Not Resolved]
  - Nausea [Not Recovered/Not Resolved]
  - Vomiting [Not Recovered/Not Resolved]
  - Off label use [Recovered/Resolved]

NARRATIVE: CASE EVENT DATE: 20200624
